FAERS Safety Report 7871738-9 (Version None)
Quarter: 2011Q4

REPORT INFORMATION
  Report Type: 
  Country: None (occurrence: None)
  Receive Date: 20111029
  Receipt Date: 20110307
  Transmission Date: 20120403
  Serious: No
  Sender: FDA-Public Use
  Company Number: US-AMGEN-USASP2011012694

PATIENT
  Age: 61 Year
  Sex: Female

DRUGS (5)
  1. FOLIC ACID [Concomitant]
     Dosage: 1 MG, UNK
  2. PREDNISONE [Concomitant]
     Dosage: 1 MG, UNK
  3. METHOTREXATE [Concomitant]
     Dosage: 4 MG, UNK
  4. DOLOBID [Concomitant]
     Dosage: 1 MG, UNK
  5. ENBREL [Suspect]
     Indication: RHEUMATOID ARTHRITIS
     Dosage: 25 MG, Q2WK

REACTIONS (2)
  - FEAR [None]
  - INJECTION SITE PAIN [None]
